FAERS Safety Report 7085639-X (Version None)
Quarter: 2010Q4

REPORT INFORMATION
  Report Type: 
  Country: None (occurrence: None)
  Receive Date: 20101105
  Receipt Date: 20101026
  Transmission Date: 20110411
  Serious: Yes (Death, Other)
  Sender: FDA-Public Use
  Company Number: CN-SANOFI-AVENTIS-2010SA065445

PATIENT
  Age: 68 Year
  Sex: Female

DRUGS (5)
  1. PREDNISOLONE [Suspect]
     Route: 065
  2. RIFAMPICIN [Suspect]
     Indication: TUBERCULOSIS
     Route: 065
  3. ISONIAZID [Suspect]
     Indication: TUBERCULOSIS
     Route: 065
  4. TACROLIMUS [Suspect]
     Route: 065
  5. STREPTOMYCIN [Suspect]
     Indication: TUBERCULOSIS
     Route: 065

REACTIONS (7)
  - BACK PAIN [None]
  - BONE TUBERCULOSIS [None]
  - JAUNDICE [None]
  - LIVER DISORDER [None]
  - LUNG INFECTION [None]
  - PYREXIA [None]
  - RESPIRATORY FAILURE [None]
